FAERS Safety Report 18751214 (Version 1)
Quarter: 2021Q1

REPORT INFORMATION
  Report Type: Spontaneous
  Country: CA (occurrence: CA)
  Receive Date: 20210118
  Receipt Date: 20210118
  Transmission Date: 20210419
  Serious: Yes (Other)
  Sender: FDA-Public Use
  Company Number: CA-ACCORD-214203

PATIENT
  Age: 18 Month
  Sex: Male

DRUGS (6)
  1. TOPOTECAN [Suspect]
     Active Substance: TOPOTECAN HYDROCHLORIDE
     Indication: NEUROBLASTOMA
     Dosage: FREQUENCY: CYCLICAL, TOPOTECAN HYDROCHLORIDE
  2. PROCYTOX [Suspect]
     Active Substance: CYCLOPHOSPHAMIDE
     Indication: NEUROBLASTOMA
     Dosage: FREQUENCY: CYCLICAL
  3. DOXORUBICIN [Suspect]
     Active Substance: DOXORUBICIN
     Indication: PRODUCT USED FOR UNKNOWN INDICATION
  4. ETOPOSIDE. [Suspect]
     Active Substance: ETOPOSIDE
     Indication: NEUROBLASTOMA
     Dosage: FREQUENCY: CYCLICAL
  5. CARBOPLATIN. [Suspect]
     Active Substance: CARBOPLATIN
     Indication: NEUROBLASTOMA
     Dosage: FREQUENCY: CYCLICAL
  6. DOXORUBICIN [Suspect]
     Active Substance: DOXORUBICIN
     Indication: NEUROBLASTOMA
     Dosage: PEGYLATED LIPOSOMAL DOXORUBICIN HYDROCHLORIDE, FREQUENCY: CYCLICAL

REACTIONS (4)
  - Product use issue [Unknown]
  - Anaplastic lymphoma kinase gene mutation [Unknown]
  - Off label use [Unknown]
  - Neoplasm progression [Unknown]
